FAERS Safety Report 4442385-6 (Version None)
Quarter: 2004Q3

REPORT INFORMATION
  Report Type: 
  Country: None (occurrence: None)
  Receive Date: 20040903
  Receipt Date: 20040624
  Transmission Date: 20050211
  Serious: Yes (Other)
  Sender: FDA-Public Use
  Company Number: 2004UW09507

PATIENT
  Age: 65 Year
  Sex: Female
  Weight: 58.0604 kg

DRUGS (15)
  1. CRESTOR [Suspect]
     Indication: BLOOD CHOLESTEROL INCREASED
     Dosage: 10 MG PO
     Route: 048
     Dates: start: 20040504
  2. NEURONTIN [Concomitant]
  3. ZETIA [Concomitant]
  4. PREMARIN [Concomitant]
  5. DOXEPIN HCL [Concomitant]
  6. LIPITOR [Concomitant]
  7. ASPIRIN [Concomitant]
  8. OMEGA 3 [Concomitant]
  9. CITRACAL [Concomitant]
  10. MEDROXYPROGESTERONE [Concomitant]
  11. VICON FORTE [Concomitant]
  12. LISINOPRIL [Concomitant]
  13. VITAMIN E [Concomitant]
  14. POTASSIUM [Concomitant]
  15. VITAMIN A [Concomitant]

REACTIONS (2)
  - BLOOD CHOLESTEROL INCREASED [None]
  - FLATULENCE [None]
